FAERS Safety Report 8585195-0 (Version None)
Quarter: 2012Q3

REPORT INFORMATION
  Report Type: 
  Country: None (occurrence: None)
  Receive Date: 20120810
  Receipt Date: 20120807
  Transmission Date: 20120928
  Serious: Yes (Death, Other)
  Sender: FDA-Public Use
  Company Number: PHEH2012US015528

PATIENT
  Sex: Female

DRUGS (1)
  1. RECLAST [Suspect]
     Dosage: UNK
     Route: 042
     Dates: start: 20101013

REACTIONS (4)
  - BRONCHOPNEUMONIA [None]
  - DEATH [None]
  - TRISOMY 21 [None]
  - DEMENTIA ALZHEIMER'S TYPE [None]
